FAERS Safety Report 18272903 (Version 1)
Quarter: 2020Q3

REPORT INFORMATION
  Report Type: Spontaneous
  Country: US (occurrence: US)
  Receive Date: 20200916
  Receipt Date: 20200916
  Transmission Date: 20201103
  Serious: No
  Sender: FDA-Public Use
  Company Number: None

PATIENT
  Age: 82 Year
  Sex: Male
  Weight: 106.7 kg

DRUGS (19)
  1. FERROUS SULFATE. [Concomitant]
     Active Substance: FERROUS SULFATE
  2. VITAMIN C [Concomitant]
     Active Substance: ASCORBIC ACID
  3. PANTOPRAZOLE [Concomitant]
     Active Substance: PANTOPRAZOLE
  4. FASLODEX [Concomitant]
     Active Substance: FULVESTRANT
  5. COLACE [Concomitant]
     Active Substance: DOCUSATE SODIUM
  6. MAGNESIUM [Concomitant]
     Active Substance: MAGNESIUM
  7. LOSARTAN POTASSIUM. [Concomitant]
     Active Substance: LOSARTAN POTASSIUM
  8. LEVOTHYROXINE SODIUM. [Concomitant]
     Active Substance: LEVOTHYROXINE SODIUM
  9. GUAIFENESIN. [Concomitant]
     Active Substance: GUAIFENESIN
  10. DITROPAN XL [Concomitant]
     Active Substance: OXYBUTYNIN CHLORIDE
  11. IBRANCE [Suspect]
     Active Substance: PALBOCICLIB
     Indication: BREAST CANCER
     Route: 048
     Dates: start: 20200729
  12. TRAMADOL. [Concomitant]
     Active Substance: TRAMADOL
  13. VITAMIN B?6 [Concomitant]
     Active Substance: PYRIDOXINE
  14. GLIPIZIDE. [Concomitant]
     Active Substance: GLIPIZIDE
  15. CARAFATE [Concomitant]
     Active Substance: SUCRALFATE
  16. PROBIOTIC DAILY [Concomitant]
  17. VITAMIN B?12 ER [Concomitant]
  18. FUROSEMIDE. [Concomitant]
     Active Substance: FUROSEMIDE
  19. ELIQUIS [Concomitant]
     Active Substance: APIXABAN

REACTIONS (1)
  - Neutropenia [None]

NARRATIVE: CASE EVENT DATE: 20200916
